FAERS Safety Report 12962504 (Version 1)
Quarter: 2016Q4

REPORT INFORMATION
  Report Type: Spontaneous
  Country: US (occurrence: US)
  Receive Date: 20161121
  Receipt Date: 20161121
  Transmission Date: 20170207
  Serious: No
  Sender: FDA-Public Use
  Company Number: US-ALLERGAN-1638029US

PATIENT
  Age: 62 Year
  Sex: Female

DRUGS (9)
  1. LUMIGAN [Concomitant]
     Active Substance: BIMATOPROST
     Indication: OPEN ANGLE GLAUCOMA
     Dosage: 2 GTT, QHS
     Route: 047
     Dates: start: 201505, end: 201507
  2. TIMOLOL MALEATE. [Concomitant]
     Active Substance: TIMOLOL MALEATE
     Dosage: UNK
     Route: 047
     Dates: start: 201412, end: 201506
  3. THERATEARS [Concomitant]
     Active Substance: CARBOXYMETHYLCELLULOSE SODIUM
     Dosage: UNK
     Route: 047
     Dates: start: 201505
  4. COMBIGAN [Suspect]
     Active Substance: BRIMONIDINE TARTRATE\TIMOLOL MALEATE
     Dosage: UNK
     Route: 047
     Dates: start: 201508
  5. SYSTANE (HYPROMELLOSE 2910 (4000 MPA.S)) [Concomitant]
     Active Substance: HYPROMELLOSE 2910 (4000 MPA.S)
     Indication: DRY EYE
     Dosage: UNK
     Route: 047
     Dates: start: 201501, end: 201505
  6. LATANOPROST. [Concomitant]
     Active Substance: LATANOPROST
     Dosage: UNK
     Route: 047
     Dates: start: 201507
  7. TIMOLOL MALEATE. [Concomitant]
     Active Substance: TIMOLOL MALEATE
     Dosage: UNK
     Route: 047
     Dates: end: 201411
  8. SYSTANE (HYPROMELLOSE 2910 (4000 MPA.S)) [Concomitant]
     Active Substance: HYPROMELLOSE 2910 (4000 MPA.S)
     Dosage: UNK
     Route: 047
  9. COMBIGAN [Suspect]
     Active Substance: BRIMONIDINE TARTRATE\TIMOLOL MALEATE
     Indication: PRODUCT USED FOR UNKNOWN INDICATION
     Dosage: UNK
     Route: 047
     Dates: start: 201506, end: 20160229

REACTIONS (11)
  - Ocular hyperaemia [Unknown]
  - Eye irritation [Unknown]
  - Headache [Not Recovered/Not Resolved]
  - Eyelids pruritus [Not Recovered/Not Resolved]
  - Erythema of eyelid [Not Recovered/Not Resolved]
  - Dry eye [Not Recovered/Not Resolved]
  - Drug dose omission [Unknown]
  - Eyelid pain [Unknown]
  - Lacrimal disorder [Unknown]
  - Medication error [Unknown]
  - Eye swelling [Unknown]

NARRATIVE: CASE EVENT DATE: 2015
